FAERS Safety Report 15698792 (Version 1)
Quarter: 2018Q4

REPORT INFORMATION
  Report Type: Spontaneous
  Country: GB (occurrence: GB)
  Receive Date: 20181207
  Receipt Date: 20181207
  Transmission Date: 20190205
  Serious: Yes (Other)
  Sender: FDA-Public Use
  Company Number: GB-BIOVITRUM-2018GB1495

PATIENT
  Age: 9 Year
  Sex: Female

DRUGS (10)
  1. ANTIBIOTICS [Concomitant]
     Active Substance: UNSPECIFIED INGREDIENT
  2. ANTIVIRALS [Concomitant]
     Active Substance: UNSPECIFIED INGREDIENT
  3. IMMUNE GLOBULIN NOS [Concomitant]
     Active Substance: IMMUNE GLOBULIN NOS
  4. CICLOSPORINE [Concomitant]
     Active Substance: CYCLOSPORINE
  5. KINERET [Suspect]
     Active Substance: ANAKINRA
     Dosage: 2MG/KG/HOUR (48MG/KG/DAY)
  6. DEXAMETHASONE. [Concomitant]
     Active Substance: DEXAMETHASONE
     Indication: PROPHYLAXIS
  7. PREDNISOLONE. [Concomitant]
     Active Substance: PREDNISOLONE
  8. KINERET [Suspect]
     Active Substance: ANAKINRA
     Indication: HAEMOPHAGOCYTIC LYMPHOHISTIOCYTOSIS
     Dosage: 0.5MG/KG/H
  9. METHYL PREDNISOLONE [Concomitant]
     Active Substance: METHYLPREDNISOLONE
     Dosage: 0.5MG/KG/HOUR
  10. ETOPOSIDE. [Concomitant]
     Active Substance: ETOPOSIDE

REACTIONS (4)
  - Pupillary light reflex tests abnormal [Recovered/Resolved]
  - Clonus [Recovered/Resolved]
  - Aspergillus infection [Unknown]
  - Bacterial infection [Unknown]
